FAERS Safety Report 6433246-1 (Version None)
Quarter: 2009Q4

REPORT INFORMATION
  Report Type: 
  Country: None (occurrence: None)
  Receive Date: 20091109
  Receipt Date: 20091030
  Transmission Date: 20100525
  Serious: Yes (Life-Threatening)
  Sender: FDA-Public Use
  Company Number: FR-ABBOTT-09P-056-0605784-00

PATIENT
  Age: 55 Year
  Sex: Male

DRUGS (6)
  1. ZECLAR TABLETS [Suspect]
     Indication: HELICOBACTER INFECTION
     Route: 048
     Dates: start: 20091002, end: 20091007
  2. VELBE [Suspect]
     Indication: HELICOBACTER INFECTION
     Route: 042
     Dates: start: 20091002, end: 20091002
  3. LOXEN [Suspect]
     Indication: HYPERTENSION
     Dates: start: 20091001
  4. CORTICOSTEROIDS [Concomitant]
     Indication: IDIOPATHIC THROMBOCYTOPENIC PURPURA
     Dates: start: 20090601
  5. TEGELINE [Concomitant]
     Indication: IDIOPATHIC THROMBOCYTOPENIC PURPURA
     Dates: start: 20090601
  6. EZETROL [Concomitant]
     Indication: HYPERCHOLESTEROLAEMIA

REACTIONS (4)
  - AGRANULOCYTOSIS [None]
  - APLASIA [None]
  - CYTOLYTIC HEPATITIS [None]
  - THROMBOCYTOPENIA [None]
